FAERS Safety Report 10257787 (Version 1)
Quarter: 2014Q2

REPORT INFORMATION
  Report Type: Not Available
  Country: US (occurrence: US)
  Receive Date: 20140625
  Receipt Date: 20140625
  Transmission Date: 20141212
  Serious: No
  Sender: FDA-Public Use
  Company Number: US-LUPIN PHARMACEUTICALS INC.-E2B_00001969

PATIENT
  Sex: Male

DRUGS (2)
  1. TRAMADOL HYDROCHLORIDE EXTENDED-RELEASE TABLETS 200 MG [Suspect]
     Indication: BACK PAIN
     Dates: start: 201402, end: 201403
  2. TRAMADOL HYDROCHLORIDE EXTENDED-RELEASE TABLETS 200 MG [Suspect]
     Indication: ARTHRALGIA
     Dates: start: 201403

REACTIONS (1)
  - Drug ineffective [Not Recovered/Not Resolved]
